FAERS Safety Report 4576259-7 (Version None)
Quarter: 2005Q1

REPORT INFORMATION
  Report Type: 
  Country: None (occurrence: None)
  Receive Date: 20050207
  Receipt Date: 20050126
  Transmission Date: 20050727
  Serious: Yes (Other)
  Sender: FDA-Public Use
  Company Number: 2005-DE-00324GD

PATIENT

DRUGS (4)
  1. HYDROCORTISONE [Suspect]
     Dosage: IU, EARLY IN THE PREGNANCY
     Route: 015
  2. AZATHIOPRINE [Suspect]
     Dosage: IU, EARLY IN THE PREGNANCY
     Route: 015
  3. INFLIXIMAB (INFLIXIMAB) [Suspect]
     Dosage: IU
     Route: 015
  4. ANTIBIOTICS (ANTIBIOTICS) [Suspect]
     Dosage: IU, EARLY IN THE PREGNANCY
     Route: 015

REACTIONS (4)
  - CONVULSION NEONATAL [None]
  - DRUG EXPOSURE DURING PREGNANCY [None]
  - JAUNDICE NEONATAL [None]
  - NEONATAL RESPIRATORY DISTRESS SYNDROME [None]
